FAERS Safety Report 14668958 (Version 6)
Quarter: 2018Q2

REPORT INFORMATION
  Report Type: Spontaneous
  Country: US (occurrence: US)
  Receive Date: 20180322
  Receipt Date: 20180625
  Transmission Date: 20180711
  Serious: Yes (Other)
  Sender: FDA-Public Use
  Company Number: US-ACTELION-A-NJ2018-169517

PATIENT
  Age: 74 Year
  Sex: Female

DRUGS (4)
  1. AMBRISENTAN [Suspect]
     Active Substance: AMBRISENTAN
     Indication: PRODUCT USED FOR UNKNOWN INDICATION
     Dosage: 5 MG, QD
     Route: 065
     Dates: start: 20130318
  2. UPTRAVI [Suspect]
     Active Substance: SELEXIPAG
     Indication: PRODUCT USED FOR UNKNOWN INDICATION
     Dosage: 1000 MCG, UNK
     Route: 048
  3. ELIQUIS [Concomitant]
     Active Substance: APIXABAN
  4. UPTRAVI [Suspect]
     Active Substance: SELEXIPAG
     Dosage: 800 MCG, UNK
     Route: 048

REACTIONS (15)
  - Oropharyngeal pain [Not Recovered/Not Resolved]
  - Fall [Recovered/Resolved]
  - Nasopharyngitis [Unknown]
  - Fatigue [Unknown]
  - Vitreous floaters [Unknown]
  - Nasal congestion [Unknown]
  - Dizziness [Not Recovered/Not Resolved]
  - Swelling [Recovering/Resolving]
  - Weight increased [Unknown]
  - Macular degeneration [Not Recovered/Not Resolved]
  - Headache [Unknown]
  - Oedema peripheral [Unknown]
  - Diarrhoea [Recovered/Resolved]
  - Blood potassium decreased [Unknown]
  - Product use issue [Not Recovered/Not Resolved]

NARRATIVE: CASE EVENT DATE: 20180215
